FAERS Safety Report 23676766 (Version 1)
Quarter: 2024Q1

REPORT INFORMATION
  Report Type: Spontaneous
  Country: CN (occurrence: CN)
  Receive Date: 20240327
  Receipt Date: 20240327
  Transmission Date: 20240410
  Serious: Yes (Disabling)
  Sender: FDA-Public Use
  Company Number: CN-CHEPLA-2024003699

PATIENT
  Age: 57 Year
  Sex: Female
  Weight: 55 kg

DRUGS (1)
  1. CAPECITABINE [Suspect]
     Active Substance: CAPECITABINE
     Indication: Gastric cancer
     Dosage: APPROVAL NO. GYZZ H20073024; 3 TABLETS IN THE MORNING AND 2 TABLETS IN THE EVENING EVERY DAY FOR ...
     Route: 048
     Dates: start: 20231001, end: 20240301

REACTIONS (1)
  - Injury corneal [Recovering/Resolving]

NARRATIVE: CASE EVENT DATE: 20240301
